FAERS Safety Report 8607314 (Version 3)
Quarter: 2013Q3

REPORT INFORMATION
  Report Type: Spontaneous
  Country: US (occurrence: US)
  Receive Date: 20120611
  Receipt Date: 20130925
  Transmission Date: 20140515
  Serious: Yes (Other)
  Sender: FDA-Public Use
  Company Number: US-ASTRAZENECA-2012SE35355

PATIENT
  Age: 24350 Day
  Sex: Male
  Weight: 58.1 kg

DRUGS (16)
  1. NEXIUM [Suspect]
     Route: 048
     Dates: start: 20070117
  2. NEXIUM [Suspect]
     Dosage: ONE PER DAY
     Route: 048
     Dates: start: 20020905, end: 20110812
  3. NEXIUM [Suspect]
     Route: 048
     Dates: start: 20090522
  4. NEXIUM [Suspect]
     Route: 048
     Dates: start: 20051020
  5. OMEPRAZOLE [Suspect]
     Dosage: ONE PER DAY
     Route: 048
  6. HYDROCODONE ACETOAMINOPHEN [Concomitant]
     Dosage: 10MG TO 325MG
     Dates: start: 20110105
  7. HYDROCODONE BT IBUPROFEN [Concomitant]
     Dosage: 7.5 TO 200 MG
     Dates: start: 20090608
  8. INDOMETHACIN [Concomitant]
     Dates: start: 20101111
  9. LODRANE [Concomitant]
     Dates: start: 20101111
  10. MECLIZINE [Concomitant]
     Dates: start: 20080514
  11. PROMETHAZINE [Concomitant]
     Dates: start: 20070904
  12. SUCRALFATE [Concomitant]
     Dates: start: 20080814
  13. MULTIVITAMIN [Concomitant]
  14. CRESTOR [Concomitant]
  15. PRILOSEC OTC [Concomitant]
     Dosage: ONCE A DAY
     Route: 048
     Dates: start: 20111227
  16. SIMVASTATIN [Concomitant]
     Dates: start: 20111227

REACTIONS (6)
  - Spinal compression fracture [Unknown]
  - Osteoporosis [Unknown]
  - Fall [Unknown]
  - Osteoarthritis [Unknown]
  - Intervertebral disc protrusion [Unknown]
  - Spinal osteoarthritis [Unknown]
